FAERS Safety Report 24972726 (Version 1)
Quarter: 2025Q1

REPORT INFORMATION
  Report Type: Spontaneous
  Country: US (occurrence: US)
  Receive Date: 20250215
  Receipt Date: 20250215
  Transmission Date: 20250409
  Serious: No
  Sender: JOHNSON AND JOHNSON
  Company Number: US-JNJFOC-20250149330

PATIENT
  Sex: Female

DRUGS (31)
  1. REMICADE [Suspect]
     Active Substance: INFLIXIMAB
     Indication: Product used for unknown indication
     Route: 041
  2. ORENCIA [Concomitant]
     Active Substance: ABATACEPT
     Indication: Product used for unknown indication
  3. ACTEMRA [Concomitant]
     Active Substance: TOCILIZUMAB
  4. KEVZARA [Concomitant]
     Active Substance: SARILUMAB
  5. ENBREL [Concomitant]
     Active Substance: ETANERCEPT
  6. XELJANZ [Concomitant]
     Active Substance: TOFACITINIB CITRATE
  7. HUMIRA [Concomitant]
     Active Substance: ADALIMUMAB
  8. RASUVO [Concomitant]
     Active Substance: METHOTREXATE SODIUM
  9. ARAVA [Concomitant]
     Active Substance: LEFLUNOMIDE
  10. OLUMIANT [Concomitant]
     Active Substance: BARICITINIB
  11. SIMPONI [Concomitant]
     Active Substance: GOLIMUMAB
  12. METHOTREXATE SODIUM [Concomitant]
     Active Substance: METHOTREXATE SODIUM
  13. DULOXETINE [Concomitant]
     Active Substance: DULOXETINE
  14. LIDOCAINE [Concomitant]
     Active Substance: LIDOCAINE
  15. HYDROXYCHLOROQUINE [Concomitant]
     Active Substance: HYDROXYCHLOROQUINE
  16. DICLOFENAC [Concomitant]
     Active Substance: DICLOFENAC
  17. SULFASALAZINE [Concomitant]
     Active Substance: SULFASALAZINE
  18. MIRALAX [Concomitant]
     Active Substance: POLYETHYLENE GLYCOL 3350
  19. VITAMIN D3 [Concomitant]
     Active Substance: CHOLECALCIFEROL
  20. TRAMADOL [Concomitant]
     Active Substance: TRAMADOL
  21. FAMOTIDINE [Concomitant]
     Active Substance: FAMOTIDINE
  22. ACETAMINOPHEN [Concomitant]
     Active Substance: ACETAMINOPHEN
  23. HYDROXYZINE HYDROCHLORIDE [Concomitant]
     Active Substance: HYDROXYZINE HYDROCHLORIDE
  24. METFORMIN [Concomitant]
     Active Substance: METFORMIN HYDROCHLORIDE
  25. ASPIRIN [Concomitant]
     Active Substance: ASPIRIN
  26. PRILOSEC [Concomitant]
     Active Substance: OMEPRAZOLE MAGNESIUM
  27. SERTRALINE HYDROCHLORIDE [Concomitant]
     Active Substance: SERTRALINE HYDROCHLORIDE
  28. BENAZEPRIL [Concomitant]
     Active Substance: BENAZEPRIL HYDROCHLORIDE
  29. OSCAL [CALCITRIOL] [Concomitant]
  30. MEDIZINE [CHLORPROMAZINE] [Concomitant]
  31. CRESTOR [Concomitant]
     Active Substance: ROSUVASTATIN CALCIUM

REACTIONS (1)
  - Chills [Unknown]
